FAERS Safety Report 23438531 (Version 4)
Quarter: 2025Q2

REPORT INFORMATION
  Report Type: Spontaneous
  Country: CA (occurrence: CA)
  Receive Date: 20240124
  Receipt Date: 20250626
  Transmission Date: 20250716
  Serious: Yes (Death, Other)
  Sender: MYLAN
  Company Number: CA-MYLANLABS-2024M1005715

PATIENT
  Age: 79 Year
  Sex: Male
  Weight: 80.7 kg

DRUGS (12)
  1. REVATIO [Suspect]
     Active Substance: SILDENAFIL CITRATE
     Indication: Pulmonary arterial hypertension
     Dosage: 20 MILLIGRAM, TID (THREE TIMES A DAY)
     Dates: start: 20130625
  2. UPTRAVI [Concomitant]
     Active Substance: SELEXIPAG
  3. IMODIUM [Concomitant]
     Active Substance: LOPERAMIDE HYDROCHLORIDE
     Dosage: UNK, QD (DAILY)
  4. AMLODIPINE [Concomitant]
     Active Substance: AMLODIPINE BESYLATE
  5. ALLOPURINOL [Concomitant]
     Active Substance: ALLOPURINOL
  6. COUMADIN [Concomitant]
     Active Substance: WARFARIN SODIUM
  7. ROSUVASTATIN [Concomitant]
     Active Substance: ROSUVASTATIN
  8. PANTOPRAZOLE [Concomitant]
     Active Substance: PANTOPRAZOLE
  9. ASPIRIN [Concomitant]
     Active Substance: ASPIRIN
  10. PERINDOPRIL [Concomitant]
     Active Substance: PERINDOPRIL
  11. BISOPROLOL [Concomitant]
     Active Substance: BISOPROLOL
  12. OPSUMIT [Concomitant]
     Active Substance: MACITENTAN

REACTIONS (6)
  - Death [Fatal]
  - Oxygen saturation decreased [Recovering/Resolving]
  - Hypoxia [Unknown]
  - Dyspnoea [Unknown]
  - Swelling [Recovered/Resolved]
  - Weight increased [Recovered/Resolved]

NARRATIVE: CASE EVENT DATE: 20240131
